FAERS Safety Report 17899748 (Version 1)
Quarter: 2020Q2

REPORT INFORMATION
  Report Type: Spontaneous
  Country: US (occurrence: US)
  Receive Date: 20200615
  Receipt Date: 20200615
  Transmission Date: 20200714
  Serious: Yes (Other)
  Sender: FDA-Public Use
  Company Number: None

PATIENT
  Age: 47 Year
  Sex: Female
  Weight: 87.75 kg

DRUGS (1)
  1. NP THYROID [Suspect]
     Active Substance: LEVOTHYROXINE\LIOTHYRONINE
     Indication: AUTOIMMUNE THYROIDITIS
     Dosage: ?          QUANTITY:1 CAPSULE(S);?
     Route: 048
     Dates: start: 20200115, end: 20200601

REACTIONS (7)
  - Weight increased [None]
  - Depression [None]
  - Recalled product administered [None]
  - Insomnia [None]
  - Blindness [None]
  - Alopecia [None]
  - Anxiety [None]

NARRATIVE: CASE EVENT DATE: 20200412
